FAERS Safety Report 22329417 (Version 1)
Quarter: 2023Q2

REPORT INFORMATION
  Report Type: Spontaneous
  Country: US (occurrence: US)
  Receive Date: 20230517
  Receipt Date: 20230517
  Transmission Date: 20230721
  Serious: No
  Sender: FDA-Public Use
  Company Number: US-ABBVIE-4745852

PATIENT
  Age: 30 Year
  Sex: Female
  Weight: 104 kg

DRUGS (10)
  1. HUMIRA [Suspect]
     Active Substance: ADALIMUMAB
     Indication: Product used for unknown indication
     Dosage: FORM STRENGTH: 40 MG
     Route: 058
     Dates: start: 202211
  2. HYDROCORTISONE [Concomitant]
     Active Substance: HYDROCORTISONE
     Indication: Rheumatoid arthritis
  3. VALERIAN [Concomitant]
     Active Substance: VALERIAN
     Indication: Insomnia
  4. PRILOSEC [Concomitant]
     Active Substance: OMEPRAZOLE MAGNESIUM
     Indication: Dyspepsia
  5. MOTRIN [Concomitant]
     Active Substance: IBUPROFEN
     Indication: Pain
  6. LAMOTRIGINE [Concomitant]
     Active Substance: LAMOTRIGINE
     Indication: Bipolar II disorder
  7. IRON [Concomitant]
     Active Substance: IRON
     Indication: Anaemia
  8. VITAMIN C [Concomitant]
     Active Substance: ASCORBIC ACID
     Indication: Supplementation therapy
  9. GUANFACINE [Concomitant]
     Active Substance: GUANFACINE
     Indication: Attention deficit hyperactivity disorder
  10. MAGNESIUM [Concomitant]
     Active Substance: MAGNESIUM
     Indication: Supplementation therapy

REACTIONS (4)
  - Injection site haemorrhage [Unknown]
  - Food poisoning [Recovered/Resolved]
  - Impaired healing [Unknown]
  - Wrong technique in product usage process [Recovered/Resolved]

NARRATIVE: CASE EVENT DATE: 20221201
